FAERS Safety Report 14965489 (Version 1)
Quarter: 2018Q2

REPORT INFORMATION
  Report Type: Spontaneous
  Country: GB (occurrence: GB)
  Receive Date: 20180601
  Receipt Date: 20180601
  Transmission Date: 20180711
  Serious: Yes (Other)
  Sender: FDA-Public Use
  Company Number: GB-GILEAD-2018-0341470

PATIENT
  Age: 80 Year
  Sex: Female
  Weight: 76.88 kg

DRUGS (18)
  1. ATORVASTATIN [Concomitant]
     Active Substance: ATORVASTATIN
  2. ESTRIOL [Concomitant]
     Active Substance: ESTRIOL
  3. LACIDIPINE [Concomitant]
     Active Substance: LACIDIPINE
  4. ACETYLSALICYLIC ACID [Concomitant]
     Active Substance: ASPIRIN
  5. MOMETASONE FUROATE. [Concomitant]
     Active Substance: MOMETASONE FUROATE
     Route: 045
  6. CANDESARTAN. [Concomitant]
     Active Substance: CANDESARTAN
  7. RANOLAZINE. [Suspect]
     Active Substance: RANOLAZINE
     Indication: ANGINA PECTORIS
     Dosage: 750 MG, QD
     Route: 048
     Dates: start: 20180308, end: 2018
  8. RANOLAZINE. [Suspect]
     Active Substance: RANOLAZINE
     Dosage: 1000 MG, QD
     Route: 048
     Dates: start: 2018, end: 20180426
  9. BISOPROLOL [Concomitant]
     Active Substance: BISOPROLOL
  10. SALBUTAMOL SULFATE [Concomitant]
     Active Substance: ALBUTEROL SULFATE
  11. QUININE SULFATE. [Concomitant]
     Active Substance: QUININE SULFATE
  12. BUDESONIDE. [Concomitant]
     Active Substance: BUDESONIDE
  13. COLECALCIFEROL [Concomitant]
     Active Substance: CHOLECALCIFEROL
  14. LANSOPRAZOLE. [Concomitant]
     Active Substance: LANSOPRAZOLE
  15. CLOPIDOGREL [Concomitant]
     Active Substance: CLOPIDOGREL BISULFATE
  16. SERTRALINE [Concomitant]
     Active Substance: SERTRALINE HYDROCHLORIDE
  17. CO DYDRAGESIC [Concomitant]
  18. CANDESARTAN. [Concomitant]
     Active Substance: CANDESARTAN

REACTIONS (10)
  - Arthralgia [Not Recovered/Not Resolved]
  - Balance disorder [Unknown]
  - Dizziness [Recovering/Resolving]
  - Dyspnoea [Recovering/Resolving]
  - Abdominal distension [Recovering/Resolving]
  - Myalgia [Not Recovered/Not Resolved]
  - Vision blurred [Recovering/Resolving]
  - Nausea [Recovered/Resolved with Sequelae]
  - Tension headache [Recovering/Resolving]
  - Inappropriate schedule of drug administration [Recovered/Resolved]

NARRATIVE: CASE EVENT DATE: 20180308
